FAERS Safety Report 14242904 (Version 1)
Quarter: 2017Q4

REPORT INFORMATION
  Report Type: Spontaneous
  Country: US (occurrence: None)
  Receive Date: 20171130
  Receipt Date: 20171130
  Transmission Date: 20180321
  Serious: Yes (Hospitalization)
  Sender: FDA-Public Use
  Company Number: None

PATIENT
  Age: 44 Year
  Sex: Female

DRUGS (8)
  1. ACTEMRA [Suspect]
     Active Substance: TOCILIZUMAB
     Indication: RHEUMATOID ARTHRITIS
     Route: 058
     Dates: start: 20160630
  2. HYDROMORPHON [Concomitant]
     Active Substance: HYDROMORPHONE
  3. LEVOTHYROXIN [Concomitant]
     Active Substance: LEVOTHYROXINE
  4. BACLOFEN. [Concomitant]
     Active Substance: BACLOFEN
  5. FOLIC ACID. [Concomitant]
     Active Substance: FOLIC ACID
  6. FERROUS SULF [Concomitant]
     Active Substance: FERROUS SULFATE
  7. DIAZEPAM. [Concomitant]
     Active Substance: DIAZEPAM
  8. LIDOCAINE. [Concomitant]
     Active Substance: LIDOCAINE

REACTIONS (3)
  - Diverticulitis [None]
  - Infection [None]
  - Therapy cessation [None]

NARRATIVE: CASE EVENT DATE: 20171129
